FAERS Safety Report 8863545 (Version 1)
Quarter: 2012Q4

REPORT INFORMATION
  Report Type: 
  Country: US (occurrence: US)
  Receive Date: 20121024
  Receipt Date: 20121024
  Transmission Date: 20130627
  Serious: No
  Sender: FDA-Public Use
  Company Number: US-AMGEN-USASP2011063182

PATIENT
  Age: 56 Year
  Sex: Female
  Weight: 66.21 kg

DRUGS (4)
  1. ENBREL [Suspect]
     Indication: RHEUMATOID ARTHRITIS
     Dosage: 50 mg, qwk
  2. LISINOPRIL [Concomitant]
     Dosage: 40 mg, qd
     Route: 048
  3. TOPROL [Concomitant]
     Dosage: 50 mg, qd
     Route: 048
  4. DIOVAN [Concomitant]
     Dosage: 160 mg, qd
     Route: 048

REACTIONS (1)
  - Influenza [Unknown]
